FAERS Safety Report 4631144-7 (Version None)
Quarter: 2005Q2

REPORT INFORMATION
  Report Type: 
  Country: None (occurrence: None)
  Receive Date: 20050407
  Receipt Date: 20050407
  Transmission Date: 20051028
  Serious: Yes (Hospitalization)
  Sender: FDA-Public Use
  Company Number: None

PATIENT
  Age: 66 Year
  Sex: Female

DRUGS (6)
  1. DEPAKOTE [Suspect]
     Indication: CONVULSION
     Dosage: 750 MG   QID   ORAL
     Route: 048
  2. DEPAKOTE [Suspect]
     Indication: MENINGIOMA
     Dosage: 750 MG   QID   ORAL
     Route: 048
  3. RISPERDAL [Concomitant]
  4. LOPRESSOR [Concomitant]
  5. INSULIN [Concomitant]
  6. ADVIL [Concomitant]

REACTIONS (5)
  - ASTHENIA [None]
  - CONFUSIONAL STATE [None]
  - MENTAL STATUS CHANGES [None]
  - PANCREATITIS ACUTE [None]
  - TREMOR [None]
